FAERS Safety Report 4610312-4 (Version None)
Quarter: 2005Q1

REPORT INFORMATION
  Report Type: 
  Country: None (occurrence: None)
  Receive Date: 20050314
  Receipt Date: 20050307
  Transmission Date: 20050727
  Serious: Yes (Other)
  Sender: FDA-Public Use
  Company Number: S05-USA-00453-01

PATIENT
  Age: 16 Year
  Sex: Female

DRUGS (3)
  1. LEXAPRO [Suspect]
     Indication: DEPRESSION
     Dosage: 20 MG QD PO
     Route: 048
     Dates: start: 20040101
  2. WELLBUTRIN [Concomitant]
  3. MINOCYCLINE HCL [Concomitant]

REACTIONS (1)
  - COLOUR BLINDNESS ACQUIRED [None]
